FAERS Safety Report 12592349 (Version 3)
Quarter: 2016Q3

REPORT INFORMATION
  Report Type: Other
  Country: US (occurrence: US)
  Receive Date: 20160726
  Receipt Date: 20160815
  Transmission Date: 20161109
  Serious: Yes (Other)
  Sender: FDA-Public Use
  Company Number: US-SHEFFIELD PHARMACEUTICALS, LLC-1055546

PATIENT
  Age: 69 Year
  Sex: Female
  Weight: 77.27 kg

DRUGS (1)
  1. SHEFFIELD ARTHRITIS AND MUSCLE PAIN RELIEF [Suspect]
     Active Substance: CAPSICUM OLEORESIN
     Route: 061

REACTIONS (2)
  - Application site pain [Recovering/Resolving]
  - Application site hypoaesthesia [Unknown]
